FAERS Safety Report 4762853-7 (Version None)
Quarter: 2005Q3

REPORT INFORMATION
  Report Type: 
  Country: None (occurrence: None)
  Receive Date: 20050907
  Receipt Date: 20050830
  Transmission Date: 20060218
  Serious: Yes (Other)
  Sender: FDA-Public Use
  Company Number: PHFR2005GB02911

PATIENT
  Age: 31 Year
  Sex: Male

DRUGS (1)
  1. DICLOFENAC POTASSIUM [Suspect]
     Indication: PAIN
     Dosage: 50 MG, TID
     Route: 048
     Dates: start: 20050802, end: 20050809

REACTIONS (3)
  - DYSPNOEA [None]
  - OEDEMA MOUTH [None]
  - URTICARIA [None]
